FAERS Safety Report 6839586-6 (Version None)
Quarter: 2010Q3

REPORT INFORMATION
  Report Type: 
  Country: None (occurrence: None)
  Receive Date: 20100714
  Receipt Date: 20100429
  Transmission Date: 20110219
  Serious: No
  Sender: FDA-Public Use
  Company Number: A0857292A

PATIENT
  Age: 74 Year
  Sex: Female

DRUGS (4)
  1. FLOVENT [Suspect]
     Dosage: 1PUFF TWICE PER DAY
     Route: 055
     Dates: start: 20100422
  2. MAXAIR [Concomitant]
  3. SPIRIVA [Concomitant]
  4. NYSTATIN [Concomitant]

REACTIONS (5)
  - APHONIA [None]
  - COUGH [None]
  - HEADACHE [None]
  - MUSCULOSKELETAL STIFFNESS [None]
  - ORAL FUNGAL INFECTION [None]
